FAERS Safety Report 19402438 (Version 1)
Quarter: 2021Q2

REPORT INFORMATION
  Report Type: Spontaneous
  Country: US (occurrence: US)
  Receive Date: 20210610
  Receipt Date: 20210610
  Transmission Date: 20210717
  Serious: Yes (Other)
  Sender: FDA-Public Use
  Company Number: US-009507513-2106USA001345

PATIENT
  Sex: Female

DRUGS (4)
  1. KEYTRUDA [Suspect]
     Active Substance: PEMBROLIZUMAB
     Indication: UTERINE CANCER
  2. ELIQUIS [Concomitant]
     Active Substance: APIXABAN
  3. LEVOTHYROXINE. [Concomitant]
     Active Substance: LEVOTHYROXINE
  4. LENVATINIB MESYLATE [Suspect]
     Active Substance: LENVATINIB MESYLATE
     Indication: UTERINE CANCER

REACTIONS (4)
  - Blood albumin decreased [Recovering/Resolving]
  - Thrombosis [Recovering/Resolving]
  - Pleural effusion [Recovering/Resolving]
  - Haemoglobin decreased [Recovering/Resolving]
